FAERS Safety Report 4836617-X (Version None)
Quarter: 2005Q4

REPORT INFORMATION
  Report Type: 
  Country: None (occurrence: None)
  Receive Date: 20051121
  Receipt Date: 20051108
  Transmission Date: 20060501
  Serious: Yes (Hospitalization)
  Sender: FDA-Public Use
  Company Number: HQWYE463014SEP05

PATIENT
  Age: 46 Year
  Sex: Female
  Weight: 72.64 kg

DRUGS (4)
  1. PREMARIN [Suspect]
     Indication: OESTROGEN REPLACEMENT THERAPY
     Dosage: 1 TABLET 1X PER 1 DAY, ORAL
     Route: 048
     Dates: start: 20050401, end: 20050512
  2. LEXAPRO [Concomitant]
  3. ATIVAN [Concomitant]
  4. VICODIN [Concomitant]

REACTIONS (8)
  - ATELECTASIS [None]
  - HAEMOPTYSIS [None]
  - INTERNATIONAL NORMALISED RATIO DECREASED [None]
  - PLEURAL EFFUSION [None]
  - PULMONARY EMBOLISM [None]
  - PULMONARY INFARCTION [None]
  - THERAPY NON-RESPONDER [None]
  - TRANSIENT ISCHAEMIC ATTACK [None]
